FAERS Safety Report 15556723 (Version 3)
Quarter: 2018Q4

REPORT INFORMATION
  Report Type: Report from Study
  Country: US (occurrence: US)
  Receive Date: 20181026
  Receipt Date: 20181116
  Transmission Date: 20190205
  Serious: Yes (Hospitalization, Other)
  Sender: FDA-Public Use
  Company Number: PHHY2018US134903

PATIENT
  Age: 44 Year
  Sex: Male
  Weight: 150 kg

DRUGS (1)
  1. COSENTYX [Suspect]
     Active Substance: SECUKINUMAB
     Indication: PSORIASIS
     Dosage: 300 MG, QMO
     Route: 058
     Dates: start: 20180228, end: 20180807

REACTIONS (11)
  - Lung abscess [Recovering/Resolving]
  - Streptococcal infection [Unknown]
  - Pneumonia aspiration [Recovering/Resolving]
  - Dyspnoea [Unknown]
  - Chest discomfort [Unknown]
  - Crepitations [Unknown]
  - Productive cough [Unknown]
  - Cough [Unknown]
  - Bronchospasm [Unknown]
  - Infection [Unknown]
  - Wheezing [Unknown]

NARRATIVE: CASE EVENT DATE: 20180814
